FAERS Safety Report 4462311-3 (Version None)
Quarter: 2004Q3

REPORT INFORMATION
  Report Type: 
  Country: None (occurrence: None)
  Receive Date: 20040924
  Receipt Date: 20040913
  Transmission Date: 20050211
  Serious: Yes (Hospitalization)
  Sender: FDA-Public Use
  Company Number: 209016

PATIENT
  Age: 73 Year
  Sex: Male
  Weight: 78.9 kg

DRUGS (2)
  1. AVASTIN [Suspect]
     Indication: COLON CANCER METASTATIC
     Dosage: 390 MG, QOW, INTRAVENOUS
     Route: 042
     Dates: end: 20040811
  2. ELOXATIN [Concomitant]

REACTIONS (4)
  - CYANOSIS [None]
  - ERYTHEMA [None]
  - LOSS OF CONSCIOUSNESS [None]
  - URINARY INCONTINENCE [None]
